FAERS Safety Report 8976031 (Version 3)
Quarter: 2013Q1

REPORT INFORMATION
  Report Type: Spontaneous
  Country: FR (occurrence: FR)
  Receive Date: 20121219
  Receipt Date: 20130117
  Transmission Date: 20140127
  Serious: Yes (Death, Other)
  Sender: FDA-Public Use
  Company Number: FR-ROCHE-1170204

PATIENT
  Age: 69 Year
  Sex: Male

DRUGS (2)
  1. ALTEPLASE [Suspect]
     Indication: ISCHAEMIC STROKE
     Dosage: USUAL DOSE
     Route: 042
  2. PLATELET AGGREGATION INHIBITORS [Concomitant]
     Indication: ISCHAEMIC STROKE
     Route: 065

REACTIONS (10)
  - Death [Fatal]
  - Pericardial haemorrhage [Unknown]
  - Aortic dissection [Unknown]
  - Pain in extremity [Unknown]
  - Feeling cold [Unknown]
  - Radial pulse abnormal [Unknown]
  - Blood pressure systolic decreased [Unknown]
  - Abdominal pain [Unknown]
  - Dysphagia [Unknown]
  - Peripheral ischaemia [Unknown]
